FAERS Safety Report 6521434-5 (Version None)
Quarter: 2009Q4

REPORT INFORMATION
  Report Type: 
  Country: None (occurrence: None)
  Receive Date: 20091230
  Receipt Date: 20091221
  Transmission Date: 20100525
  Serious: Yes (Hospitalization)
  Sender: FDA-Public Use
  Company Number: CZ-ROCHE-676167

PATIENT
  Age: 33 Year
  Sex: Male

DRUGS (4)
  1. ENFUVIRTIDE [Suspect]
     Route: 065
  2. TENOFOVIR [Suspect]
     Route: 065
  3. TIPRANAVIR [Suspect]
     Route: 065
  4. RITONAVIR [Suspect]
     Route: 065

REACTIONS (1)
  - APPENDICITIS [None]
